FAERS Safety Report 4862077-9 (Version None)
Quarter: 2005Q4

REPORT INFORMATION
  Report Type: 
  Country: None (occurrence: None)
  Receive Date: 20051130
  Receipt Date: 20041203
  Transmission Date: 20060501
  Serious: Yes (Other)
  Sender: FDA-Public Use
  Company Number: PHEH2004US12272

PATIENT
  Sex: Female

DRUGS (1)
  1. LAMISIL [Suspect]
     Indication: NAIL TINEA
     Dosage: QD, ORAL
     Route: 048
     Dates: start: 20041104, end: 20041108

REACTIONS (4)
  - ERYTHEMA [None]
  - RASH [None]
  - SWELLING FACE [None]
  - URTICARIA [None]
